FAERS Safety Report 4321004-3 (Version None)
Quarter: 2004Q1

REPORT INFORMATION
  Report Type: 
  Country: None (occurrence: None)
  Receive Date: 20040303
  Receipt Date: 20030620
  Transmission Date: 20041129
  Serious: Yes (Other)
  Sender: FDA-Public Use
  Company Number: 2003SA000120

PATIENT
  Age: 45 Year
  Sex: Female

DRUGS (7)
  1. THYMOGLOBULIN [Suspect]
     Indication: RENAL TRANSPLANT
     Dosage: 75 MG X1 INTRAVENOUS
     Route: 042
     Dates: start: 20030606
  2. CELLCEPT [Concomitant]
  3. TACROLIMUS [Concomitant]
  4. DEXAMETHASONE [Concomitant]
  5. VERSED [Concomitant]
  6. FENTANYL [Concomitant]
  7. PROPOFOL [Concomitant]

REACTIONS (5)
  - DIALYSIS [None]
  - HYPERKALAEMIA [None]
  - SWELLING FACE [None]
  - THROMBOCYTOPENIA [None]
  - VENA CAVA THROMBOSIS [None]
